FAERS Safety Report 9890664 (Version 1)
Quarter: 2014Q1

REPORT INFORMATION
  Report Type: Spontaneous
  Country: US (occurrence: None)
  Receive Date: 20140210
  Receipt Date: 20140210
  Transmission Date: 20141002
  Serious: Yes (Hospitalization)
  Sender: FDA-Public Use
  Company Number: None

PATIENT
  Age: 50 Year
  Sex: Male
  Weight: 85.2 kg

DRUGS (2)
  1. BENDAMUSTINE HYDROCHLORIDE [Suspect]
  2. RITUXIMAB (MOAB C2B8 ANTI CD20, CHIMERIC) [Suspect]

REACTIONS (9)
  - Device malfunction [None]
  - Device dislocation [None]
  - Device kink [None]
  - Pain in extremity [None]
  - Tenderness [None]
  - Erythema [None]
  - Deep vein thrombosis [None]
  - Thrombophlebitis superficial [None]
  - Musculoskeletal pain [None]
